FAERS Safety Report 17713207 (Version 1)
Quarter: 2020Q2

REPORT INFORMATION
  Report Type: Spontaneous
  Country: US (occurrence: US)
  Receive Date: 20200424
  Receipt Date: 20200424
  Transmission Date: 20200714
  Serious: Yes (Death)
  Sender: FDA-Public Use
  Company Number: None

PATIENT
  Age: 63 Year
  Sex: Male

DRUGS (1)
  1. ESBRIET [Suspect]
     Active Substance: PIRFENIDONE
     Indication: IDIOPATHIC PULMONARY FIBROSIS
     Route: 048
     Dates: start: 20180924, end: 20190124

REACTIONS (8)
  - Pyrexia [None]
  - General physical health deterioration [None]
  - Dyspnoea [None]
  - Tachycardia [None]
  - Interstitial lung disease [None]
  - Chest X-ray abnormal [None]
  - Respiratory failure [None]
  - Lung infiltration [None]

NARRATIVE: CASE EVENT DATE: 20190124
